FAERS Safety Report 9515204 (Version 2)
Quarter: 2014Q1

REPORT INFORMATION
  Report Type: Spontaneous
  Country: US (occurrence: None)
  Receive Date: 20130305
  Receipt Date: 20140306
  Transmission Date: 20141002
  Serious: Yes (Other)
  Sender: FDA-Public Use
  Company Number: 163-21880-12121704

PATIENT
  Age: 64 Year
  Sex: Female

DRUGS (7)
  1. REVLIMID (LENALIDOMIDE) (CAPSULES) [Suspect]
     Indication: PLASMA CELL MYELOMA
     Dosage: 10 MG, 28 IN 28 D, PO
     Route: 048
     Dates: start: 20121120
  2. XANAX (ALPRAZOLAM) [Concomitant]
  3. VANCOMYCIN [Concomitant]
  4. BENADRYL (DIPHENYDRAMINE HYDROCHLORIDE) [Concomitant]
  5. LEXAPRO (ESCITALOPRAM OXALATE) [Concomitant]
  6. HALDOL (HALOPERIDOL) [Concomitant]
  7. ACETAMINOPHEN (PARACETAMOL) [Concomitant]

REACTIONS (7)
  - Sinusitis [None]
  - Clostridium difficile infection [None]
  - Protein total increased [None]
  - Dysphagia [None]
  - Hyperhidrosis [None]
  - Fatigue [None]
  - Diarrhoea [None]
